FAERS Safety Report 10222026 (Version 2)
Quarter: 2014Q2

REPORT INFORMATION
  Report Type: Report from Study
  Country: IT (occurrence: IT)
  Receive Date: 20140606
  Receipt Date: 20140606
  Transmission Date: 20141212
  Serious: No
  Sender: FDA-Public Use
  Company Number: IT-BIOMARINAP-IT-2014-102252

PATIENT
  Age: 8 Year
  Sex: Female

DRUGS (2)
  1. NAGLAZYME [Suspect]
     Indication: MUCOPOLYSACCHARIDOSIS VI
     Dosage: 1 MG/KG, QW
     Route: 041
     Dates: start: 20060221
  2. TRIMETON                           /00072502/ [Concomitant]
     Indication: PREMEDICATION

REACTIONS (1)
  - Carpal tunnel decompression [Recovered/Resolved]
